FAERS Safety Report 25502892 (Version 2)
Quarter: 2025Q4

REPORT INFORMATION
  Report Type: Report from Study
  Country: US (occurrence: US)
  Receive Date: 20250702
  Receipt Date: 20251010
  Transmission Date: 20260118
  Serious: Yes (Other)
  Sender: ABBVIE
  Company Number: US-ABBVIE-6352449

PATIENT
  Sex: Male

DRUGS (1)
  1. HUMIRA [Suspect]
     Active Substance: ADALIMUMAB
     Indication: Product used for unknown indication
     Dosage: CITRATE FREE. DOSE FORM: SOLUTION FOR INJECTION IN PRE-FILLED PEN
     Route: 058
     Dates: start: 2024

REACTIONS (8)
  - Intestinal obstruction [Unknown]
  - Condition aggravated [Not Recovered/Not Resolved]
  - Food poisoning [Not Recovered/Not Resolved]
  - Accident [Unknown]
  - Limb injury [Unknown]
  - Rash erythematous [Not Recovered/Not Resolved]
  - Dry skin [Recovering/Resolving]
  - Rash pruritic [Recovering/Resolving]
